FAERS Safety Report 19048080 (Version 2)
Quarter: 2021Q4

REPORT INFORMATION
  Report Type: Spontaneous
  Country: US (occurrence: US)
  Receive Date: 20210324
  Receipt Date: 20211110
  Transmission Date: 20220303
  Serious: Yes (Other)
  Sender: FDA-Public Use
  Company Number: US-GILEAD-2021-0522289

PATIENT
  Age: 61 Year
  Sex: Male
  Weight: 108.84 kg

DRUGS (45)
  1. ATRIPLA [Suspect]
     Active Substance: EFAVIRENZ\EMTRICITABINE\TENOFOVIR DISOPROXIL FUMARATE
     Indication: HIV infection
     Dosage: UNK
     Route: 048
     Dates: start: 2007, end: 2007
  2. TRUVADA [Suspect]
     Active Substance: EMTRICITABINE\TENOFOVIR DISOPROXIL FUMARATE
     Indication: HIV infection
     Dosage: UNK
     Route: 048
     Dates: start: 20071025, end: 20180427
  3. BIKTARVY [Concomitant]
     Active Substance: BICTEGRAVIR SODIUM\EMTRICITABINE\TENOFOVIR ALAFENAMIDE FUMARATE
  4. DESCOVY [Concomitant]
     Active Substance: EMTRICITABINE\TENOFOVIR ALAFENAMIDE FUMARATE
  5. KALETRA [Concomitant]
     Active Substance: LOPINAVIR\RITONAVIR
  6. ACETAMINOPHEN [Concomitant]
     Active Substance: ACETAMINOPHEN
  7. AMOXICILLIN [Concomitant]
     Active Substance: AMOXICILLIN
  8. AZITHROMYCIN [Concomitant]
     Active Substance: AZITHROMYCIN
  9. BALSALAZIDE [Concomitant]
     Active Substance: BALSALAZIDE
  10. CANASA [Concomitant]
     Active Substance: MESALAMINE
  11. CEFUROXIME [Concomitant]
     Active Substance: CEFUROXIME
  12. CEPHALEXIN [Concomitant]
     Active Substance: CEPHALEXIN
  13. AMMONIUM CHLORIDE\DEXTROMETHORPHAN\SODIUM CITRATE [Concomitant]
     Active Substance: AMMONIUM CHLORIDE\DEXTROMETHORPHAN\SODIUM CITRATE
  14. CLONAZEPAM [Concomitant]
     Active Substance: CLONAZEPAM
  15. COLAZAL [Concomitant]
     Active Substance: BALSALAZIDE DISODIUM
  16. DICYCLOMINE [Concomitant]
     Active Substance: DICYCLOMINE HYDROCHLORIDE
  17. DIPHENE [Concomitant]
  18. DOXYCYCLINE [Concomitant]
     Active Substance: DOXYCYCLINE
  19. DOXYCYCLINE HYCLATE [Concomitant]
     Active Substance: DOXYCYCLINE HYCLATE
  20. ENOXAPARIN [Concomitant]
     Active Substance: ENOXAPARIN
  21. ESZOPICLONE [Concomitant]
     Active Substance: ESZOPICLONE
  22. ACETAMINOPHEN\HYDROCODONE [Concomitant]
     Active Substance: ACETAMINOPHEN\HYDROCODONE
  23. LEVAQUIN [Concomitant]
     Active Substance: LEVOFLOXACIN
  24. LEVITRA [Concomitant]
     Active Substance: VARDENAFIL HYDROCHLORIDE
  25. LOSARTAN [Concomitant]
     Active Substance: LOSARTAN
  26. LUNESTA [Concomitant]
     Active Substance: ESZOPICLONE
  27. METOCLOPRAMIDE [Concomitant]
     Active Substance: METOCLOPRAMIDE
  28. METRONIDAZOLE [Concomitant]
     Active Substance: METRONIDAZOLE
  29. OMEPRAZOLE [Concomitant]
     Active Substance: OMEPRAZOLE
  30. ONDANSETRON [Concomitant]
     Active Substance: ONDANSETRON
  31. OSELTAMIVIR [Concomitant]
     Active Substance: OSELTAMIVIR
  32. PANTOPRAZOLE [Concomitant]
     Active Substance: PANTOPRAZOLE
  33. PREDNISONE [Concomitant]
     Active Substance: PREDNISONE
  34. PROAIR BRONQUIAL [Concomitant]
  35. PROCHLORPERAZINE [Concomitant]
     Active Substance: PROCHLORPERAZINE
  36. SUPREP BOWEL PREP [Concomitant]
     Active Substance: MAGNESIUM SULFATE\POTASSIUM SULFATE\SODIUM SULFATE
  37. TRILYTE [Concomitant]
     Active Substance: POLYETHYLENE GLYCOL 3350\POTASSIUM CHLORIDE\SODIUM BICARBONATE\SODIUM CHLORIDE
  38. VANCOMYCIN [Concomitant]
     Active Substance: VANCOMYCIN
  39. VIAGRA [Concomitant]
     Active Substance: SILDENAFIL CITRATE
  40. VITAMIN D2 [Concomitant]
     Active Substance: ERGOCALCIFEROL
  41. COUMADIN [Concomitant]
     Active Substance: WARFARIN SODIUM
  42. FOLIC ACID [Concomitant]
     Active Substance: FOLIC ACID
  43. ERGOCALCIFEROL [Concomitant]
     Active Substance: ERGOCALCIFEROL
  44. ATORVASTATIN [Concomitant]
     Active Substance: ATORVASTATIN
  45. PHYTONADIONE [Concomitant]
     Active Substance: PHYTONADIONE

REACTIONS (13)
  - Lower limb fracture [Unknown]
  - Wrist fracture [Recovered/Resolved]
  - Osteoporosis [Not Recovered/Not Resolved]
  - Chronic kidney disease [Recovered/Resolved]
  - Tibia fracture [Recovered/Resolved]
  - Emotional distress [Not Recovered/Not Resolved]
  - Anhedonia [Not Recovered/Not Resolved]
  - Anxiety [Not Recovered/Not Resolved]
  - Pain [Not Recovered/Not Resolved]
  - Fall [Unknown]
  - Arthritis [Not Recovered/Not Resolved]
  - Quality of life decreased [Unknown]
  - Depression [Not Recovered/Not Resolved]

NARRATIVE: CASE EVENT DATE: 20070101
